FAERS Safety Report 4400638-1 (Version None)
Quarter: 2004Q3

REPORT INFORMATION
  Report Type: 
  Country: None (occurrence: None)
  Receive Date: 20040719
  Receipt Date: 20040706
  Transmission Date: 20050211
  Serious: Yes (Other)
  Sender: FDA-Public Use
  Company Number: PHEH2004US07372

PATIENT

DRUGS (1)
  1. LOTREL [Suspect]

REACTIONS (1)
  - CARDIAC FAILURE CONGESTIVE [None]
